FAERS Safety Report 22016486 (Version 1)
Quarter: 2023Q1

REPORT INFORMATION
  Report Type: Spontaneous
  Country: FR (occurrence: FR)
  Receive Date: 20230221
  Receipt Date: 20230221
  Transmission Date: 20230417
  Serious: Yes (Hospitalization)
  Sender: FDA-Public Use
  Company Number: None

PATIENT
  Age: 47 Year
  Sex: Male
  Weight: 90 kg

DRUGS (7)
  1. RILUZOLE [Suspect]
     Active Substance: RILUZOLE
     Indication: Amyotrophic lateral sclerosis
     Dosage: 50 MILLIGRAM, BID
     Route: 048
     Dates: start: 20221215, end: 20230112
  2. CHOLECALCIFEROL [Concomitant]
     Active Substance: CHOLECALCIFEROL
     Indication: Product used for unknown indication
     Dosage: 100000 INTERNATIONAL UNIT, MONTHLY
     Route: 048
     Dates: start: 202301
  3. .ALPHA.-TOCOPHEROL ACETATE, D- [Concomitant]
     Active Substance: .ALPHA.-TOCOPHEROL ACETATE, D-
     Indication: Product used for unknown indication
     Dosage: 500 MILLIGRAM, BID
     Dates: start: 202301
  4. ALPRAZOLAM [Concomitant]
     Active Substance: ALPRAZOLAM
     Indication: Product used for unknown indication
     Dosage: 0.5 MILLIGRAM, Q8H
     Route: 048
     Dates: start: 202301
  5. VALPROMIDE [Concomitant]
     Active Substance: VALPROMIDE
     Indication: Bipolar disorder
     Dosage: 600 MILLIGRAM, BID
     Route: 048
     Dates: start: 2017
  6. SYMBICORT [Concomitant]
     Active Substance: BUDESONIDE\FORMOTEROL FUMARATE DIHYDRATE
     Indication: Asthma
     Dosage: 2 DOSAGE FORM, BID, 200/6 MICROGRAMS PER DOSE
  7. ACETAMINOPHEN [Concomitant]
     Active Substance: ACETAMINOPHEN
     Dosage: 1 GRAM, Q8H, (IF NECESSARY)
     Route: 048

REACTIONS (1)
  - Myocarditis [Recovering/Resolving]

NARRATIVE: CASE EVENT DATE: 20230110
